FAERS Safety Report 6660655-8 (Version None)
Quarter: 2010Q1

REPORT INFORMATION
  Report Type: 
  Country: None (occurrence: None)
  Receive Date: 20100331
  Receipt Date: 20100322
  Transmission Date: 20100710
  Serious: Yes (Hospitalization)
  Sender: FDA-Public Use
  Company Number: BG-NOVOPROD-306105

PATIENT
  Age: 12 Year
  Sex: Female
  Weight: 37 kg

DRUGS (9)
  1. LEVEMIR [Suspect]
     Indication: TYPE 1 DIABETES MELLITUS
     Dosage: 7 IU, QD
     Route: 058
     Dates: start: 20070101
  2. NOVORAPID [Suspect]
     Indication: TYPE 1 DIABETES MELLITUS
     Dosage: 18 IU, QD
     Route: 058
     Dates: start: 20070101
  3. KREON                              /00014701/ [Concomitant]
     Indication: CHRONIC HEPATITIS
  4. ENTEROL                            /01686601/ [Concomitant]
     Dosage: 250 MG, UNK
     Dates: end: 20100203
  5. URSO FALK [Concomitant]
     Indication: CHRONIC HEPATITIS
     Dosage: 500 MG, UNK
  6. CARSIL [Concomitant]
     Indication: CHRONIC HEPATITIS
     Dosage: UNK
     Dates: start: 20100203
  7. MEPRESOR [Concomitant]
     Indication: ABDOMINAL DISCOMFORT
     Dosage: 60 MG, UNK
  8. MOTILIUM                           /00498201/ [Concomitant]
     Indication: ABDOMINAL DISCOMFORT
     Dosage: 15 MG, UNK
  9. LINEX [Suspect]
     Indication: ABDOMINAL DISCOMFORT
     Dosage: UNK
     Dates: start: 20100210

REACTIONS (2)
  - ABDOMINAL DISCOMFORT [None]
  - HYPERTRANSAMINASAEMIA [None]
